FAERS Safety Report 23589773 (Version 3)
Quarter: 2024Q1

REPORT INFORMATION
  Report Type: Spontaneous
  Country: US (occurrence: US)
  Receive Date: 20240304
  Receipt Date: 20240311
  Transmission Date: 20240410
  Serious: No
  Sender: FDA-Public Use
  Company Number: US-ABBVIE-5655893

PATIENT
  Sex: Male
  Weight: 102.05 kg

DRUGS (5)
  1. DIVALPROEX SODIUM [Suspect]
     Active Substance: DIVALPROEX SODIUM
     Indication: Seizure
     Dosage: TIME INTERVAL: 0.33333333 DAYS: 2 TABLETS IN MORNING; 1 TABLET AT MID-DAY; 2 TABLETS AT NIGHT?STR...
     Route: 048
     Dates: start: 20240227, end: 20240228
  2. DIVALPROEX SODIUM [Suspect]
     Active Substance: DIVALPROEX SODIUM
     Indication: Seizure
     Dosage: FIRST AND LAST ADMIN DATE- FEB 2024?STRENGTH: 250 MG
     Route: 048
  3. DIVALPROEX SODIUM [Suspect]
     Active Substance: DIVALPROEX SODIUM
     Indication: Seizure
     Dosage: TIME INTERVAL: 0.33333333 DAYS: 1 TABLET IN MORNING; 1 TABLET AT MID-DAY; 2 TABLETS AT NIGHT?STRE...
     Route: 048
     Dates: start: 2016, end: 20240226
  4. DIVALPROEX SODIUM [Suspect]
     Active Substance: DIVALPROEX SODIUM
     Indication: Seizure
     Dosage: TIME INTERVAL: 0.33333333 DAYS: 1 TABLET IN MORNING; 1 TABLET AT MID-DAY; 2 TABLETS AT NIGHT?STRE...
     Route: 048
     Dates: start: 20240229
  5. ALLEGRA [Concomitant]
     Active Substance: FEXOFENADINE HYDROCHLORIDE
     Indication: Hypersensitivity

REACTIONS (7)
  - Dysphonia [Not Recovered/Not Resolved]
  - Initial insomnia [Recovered/Resolved]
  - Speech disorder [Recovered/Resolved]
  - Speech disorder [Unknown]
  - Dysphonia [Recovered/Resolved]
  - Off label use [Not Recovered/Not Resolved]
  - Reduced facial expression [Recovered/Resolved]

NARRATIVE: CASE EVENT DATE: 20160101
